FAERS Safety Report 4554801-X (Version None)
Quarter: 2005Q1

REPORT INFORMATION
  Report Type: 
  Country: None (occurrence: None)
  Receive Date: 20041227
  Receipt Date: 20040506
  Transmission Date: 20050727
  Serious: Yes (Other)
  Sender: FDA-Public Use
  Company Number: 2003-05469

PATIENT
  Age: 63 Year
  Sex: Female
  Weight: 45.3597 kg

DRUGS (7)
  1. VIREAD [Suspect]
     Indication: HIV INFECTION
     Dosage: 300 MG, 1 IN 1 D, ORAL
     Route: 048
     Dates: start: 20021106, end: 20030418
  2. EPIVIR [Concomitant]
  3. KALETRA [Concomitant]
  4. VALGANCICLOVIR (VALGANCICLOVIR) [Concomitant]
  5. MEPRON (ATOVAQUOUNE) [Concomitant]
  6. AZITHROMAX (AZITHROMYCIN) [Concomitant]
  7. LOVENOX [Concomitant]

REACTIONS (1)
  - FANCONI SYNDROME ACQUIRED [None]
